FAERS Safety Report 7369535-6 (Version None)
Quarter: 2011Q1

REPORT INFORMATION
  Report Type: 
  Country: None (occurrence: None)
  Receive Date: 20110317
  Receipt Date: 20110317
  Transmission Date: 20110831
  Serious: Yes (Other)
  Sender: FDA-Public Use
  Company Number: None

PATIENT
  Sex: Female
  Weight: 63.5036 kg

DRUGS (2)
  1. PAROXETINE HCL [Suspect]
     Indication: POSTPARTUM STRESS DISORDER
     Dosage: 20 MG 1 DAILY
     Dates: start: 20020101
  2. PAROXETINE HCL [Suspect]
     Indication: DEPRESSION
     Dosage: 20 MG 1 DAILY
     Dates: start: 20020101

REACTIONS (1)
  - CONVULSION [None]
